FAERS Safety Report 6287632-3 (Version None)
Quarter: 2009Q3

REPORT INFORMATION
  Report Type: 
  Country: None (occurrence: None)
  Receive Date: 20090727
  Receipt Date: 20090727
  Transmission Date: 20100115
  Serious: Yes (Hospitalization)
  Sender: FDA-Public Use
  Company Number: None

PATIENT
  Sex: Female
  Weight: 72 kg

DRUGS (2)
  1. CISPLATIN [Suspect]
     Dosage: 134 MG
  2. TAXOL [Suspect]
     Dosage: 349 MG

REACTIONS (5)
  - OVARIAN CANCER [None]
  - PERITONITIS [None]
  - SEPSIS [None]
  - SMALL INTESTINAL RESECTION [None]
  - TACHYCARDIA [None]
